FAERS Safety Report 9460321 (Version 1)
Quarter: 2013Q3

REPORT INFORMATION
  Report Type: Spontaneous
  Country: IT (occurrence: None)
  Receive Date: 20130806
  Receipt Date: 20130806
  Transmission Date: 20140515
  Serious: Yes (Hospitalization)
  Sender: FDA-Public Use
  Company Number: 2013SA062602

PATIENT
  Age: 83 Year
  Sex: Male

DRUGS (8)
  1. ZOLPIDEM TARTRATE (ZOLPIDEM TARTRATE) [Suspect]
     Indication: DEPRESSION
     Route: 048
     Dates: start: 20130610, end: 20130610
  2. XANAX (ALPRAZOLAM) [Suspect]
     Indication: DEPRESSION
     Route: 048
     Dates: start: 20130610, end: 20130610
  3. DEBRIDAT [Concomitant]
  4. SPIRIVA [Concomitant]
  5. ALIFLUS [Concomitant]
  6. SALBUTAMOL [Concomitant]
  7. REMERON [Concomitant]
  8. CITICOLINE [Concomitant]

REACTIONS (5)
  - Fall [None]
  - Injury [None]
  - Somnolence [None]
  - Incorrect dose administered [None]
  - Intentional self-injury [None]
